FAERS Safety Report 23424279 (Version 1)
Quarter: 2024Q1

REPORT INFORMATION
  Report Type: Spontaneous
  Country: US (occurrence: US)
  Receive Date: 20240120
  Receipt Date: 20240120
  Transmission Date: 20240410
  Serious: Yes (Hospitalization)
  Sender: FDA-Public Use
  Company Number: US-TEVA-VS-3147283

PATIENT
  Age: 4 Year

DRUGS (3)
  1. CALCITRIOL [Suspect]
     Active Substance: CALCITRIOL
     Indication: Hypocalcaemia
     Dosage: 0.07 ?G/KG/DAY
     Route: 065
  2. CALCITRIOL [Suspect]
     Active Substance: CALCITRIOL
     Indication: Hypocalcaemia
     Route: 065
  3. CALCIUM [Suspect]
     Active Substance: CALCIUM
     Indication: Hypocalcaemia
     Route: 065

REACTIONS (5)
  - Nephrolithiasis [Unknown]
  - Hypercalcaemia [Unknown]
  - Nephrocalcinosis [Unknown]
  - Acute kidney injury [Unknown]
  - Renal cyst [Unknown]
